FAERS Safety Report 10790819 (Version 4)
Quarter: 2015Q2

REPORT INFORMATION
  Report Type: Spontaneous
  Country: US (occurrence: US)
  Receive Date: 20150212
  Receipt Date: 20150424
  Transmission Date: 20150821
  Serious: Yes (Death, Hospitalization)
  Sender: FDA-Public Use
  Company Number: US-PFIZER INC-2015055461

PATIENT
  Age: 62 Year
  Sex: Female
  Weight: 47 kg

DRUGS (9)
  1. REVATIO [Suspect]
     Active Substance: SILDENAFIL CITRATE
     Dosage: UNK
     Dates: start: 20150131
  2. HYDROXYQUINOLINE [Concomitant]
     Dosage: UNK
  3. SPIRONOLACTONE. [Concomitant]
     Active Substance: SPIRONOLACTONE
     Dosage: UNK
  4. TYVASO [Concomitant]
     Active Substance: TREPROSTINIL
     Indication: PULMONARY HYPERTENSION
  5. REVATIO [Suspect]
     Active Substance: SILDENAFIL CITRATE
     Dosage: 20 MG, 3X/DAY
     Route: 048
     Dates: start: 201205
  6. TRACLEER [Concomitant]
     Active Substance: BOSENTAN\BOSENTAN MONOHYDRATE
     Indication: LUNG HYPERINFLATION
     Dosage: UNK
  7. REVATIO [Suspect]
     Active Substance: SILDENAFIL CITRATE
     Indication: PULMONARY ARTERIAL HYPERTENSION
     Dosage: 20 MG, UNK
     Route: 048
  8. OXYGEN. [Concomitant]
     Active Substance: OXYGEN
     Dosage: UNK, CONTINUOUS
  9. COUMADIN [Concomitant]
     Active Substance: WARFARIN SODIUM
     Indication: ATRIAL FIBRILLATION

REACTIONS (5)
  - General physical health deterioration [Fatal]
  - Disease progression [Fatal]
  - Blood sodium decreased [Fatal]
  - Respiratory failure [Fatal]
  - Expired product administered [Unknown]

NARRATIVE: CASE EVENT DATE: 20150124
